FAERS Safety Report 16054269 (Version 2)
Quarter: 2019Q2

REPORT INFORMATION
  Report Type: Report from Study
  Country: None (occurrence: TW)
  Receive Date: 20190308
  Receipt Date: 20190409
  Transmission Date: 20190711
  Serious: Yes (Other)
  Sender: FDA-Public Use
  Company Number: TW-ABBVIE-19K-153-2692267-00

PATIENT
  Age: 70 Year
  Sex: Female
  Weight: 53.3 kg

DRUGS (2)
  1. HUMIRA [Suspect]
     Active Substance: ADALIMUMAB
     Indication: RHEUMATOID ARTHRITIS
     Dosage: ADJUST FREQUENTLY FROM 3, 4, 6 WEEKS
     Route: 058
  2. HUMIRA [Suspect]
     Active Substance: ADALIMUMAB
     Indication: RHEUMATOID ARTHRITIS
     Route: 058
     Dates: start: 20120119

REACTIONS (16)
  - Dental caries [Recovering/Resolving]
  - Myalgia [Recovering/Resolving]
  - Spinal compression fracture [Unknown]
  - Head injury [Unknown]
  - Adenoma benign [Unknown]
  - Haemoglobin decreased [Recovering/Resolving]
  - Eye discharge [Recovering/Resolving]
  - Gastrooesophageal reflux disease [Recovering/Resolving]
  - Fall [Unknown]
  - Joint injury [Unknown]
  - Dry mouth [Recovering/Resolving]
  - Arthralgia [Recovering/Resolving]
  - Sensation of foreign body [Recovering/Resolving]
  - Dry eye [Recovering/Resolving]
  - Weight decreased [Recovering/Resolving]
  - Humerus fracture [Unknown]

NARRATIVE: CASE EVENT DATE: 201712
